FAERS Safety Report 18735669 (Version 1)
Quarter: 2021Q1

REPORT INFORMATION
  Report Type: Spontaneous
  Country: US (occurrence: US)
  Receive Date: 20210113
  Receipt Date: 20210113
  Transmission Date: 20210419
  Serious: Yes (Hospitalization, Other)
  Sender: FDA-Public Use
  Company Number: US-MYLANLABS-2021M1001505

PATIENT
  Age: 63 Year
  Sex: Female

DRUGS (6)
  1. FUROSEMIDE. [Suspect]
     Active Substance: FUROSEMIDE
     Indication: DIURETIC THERAPY
     Dosage: UNK
     Route: 065
  2. METOPROLOL. [Concomitant]
     Active Substance: METOPROLOL
     Indication: HYPERTENSION
  3. METOPROLOL. [Concomitant]
     Active Substance: METOPROLOL
     Indication: SINUS RHYTHM
     Dosage: UNK
     Route: 065
  4. FLECAINIDE [Suspect]
     Active Substance: FLECAINIDE
     Indication: ATRIAL FIBRILLATION
     Dosage: 100 MILLIGRAM, BID
     Route: 065
  5. DILTIAZEM. [Suspect]
     Active Substance: DILTIAZEM
     Indication: ATRIAL FIBRILLATION
     Dosage: UNK
     Route: 065
  6. HYDROCHLOROTHIAZIDE/TRIAMTERENE [Suspect]
     Active Substance: HYDROCHLOROTHIAZIDE\TRIAMTERENE
     Indication: DIURETIC THERAPY
     Dosage: UNK
     Route: 065

REACTIONS (11)
  - Atrioventricular block first degree [Recovering/Resolving]
  - Hypokalaemia [Recovered/Resolved]
  - Toxicity to various agents [Unknown]
  - Bradycardia [Recovered/Resolved]
  - Acute kidney injury [Unknown]
  - Hyponatraemia [Recovering/Resolving]
  - Hypotension [Unknown]
  - Hypovolaemia [Recovering/Resolving]
  - Bundle branch block left [Recovering/Resolving]
  - Condition aggravated [Recovering/Resolving]
  - Ventricular tachycardia [Recovering/Resolving]
